FAERS Safety Report 12446332 (Version 2)
Quarter: 2016Q4

REPORT INFORMATION
  Report Type: Spontaneous
  Country: US (occurrence: US)
  Receive Date: 20160608
  Receipt Date: 20161007
  Transmission Date: 20170207
  Serious: Yes (Death, Hospitalization, Other)
  Sender: FDA-Public Use
  Company Number: US-AMGEN-USASP2016072120

PATIENT
  Age: 71 Year
  Sex: Male

DRUGS (3)
  1. NEULASTA [Suspect]
     Active Substance: PEGFILGRASTIM
     Indication: PRODUCT USED FOR UNKNOWN INDICATION
     Dosage: UNK
     Route: 065
  2. JEVTANA [Concomitant]
     Active Substance: CABAZITAXEL
     Dosage: UNK
  3. TAXOTERE [Concomitant]
     Active Substance: DOCETAXEL
     Dosage: UNK

REACTIONS (5)
  - Urinary tract infection [Unknown]
  - Drug ineffective [Unknown]
  - Toxic shock syndrome [Fatal]
  - Prostatic specific antigen abnormal [Unknown]
  - Multiple organ dysfunction syndrome [Unknown]
